FAERS Safety Report 7249183-9 (Version None)
Quarter: 2011Q1

REPORT INFORMATION
  Report Type: 
  Country: None (occurrence: None)
  Receive Date: 20110118
  Receipt Date: 20101230
  Transmission Date: 20110831
  Serious: Yes (Other)
  Sender: FDA-Public Use
  Company Number: 2010-4492

PATIENT
  Age: 67 Year
  Sex: Female

DRUGS (2)
  1. BOTULINUM TOXIN TYPE A [Suspect]
     Indication: SKIN WRINKLING
     Dosage: (SINGLE CYCLE),INTRAMUSCULAR
     Route: 030
     Dates: start: 20101214, end: 20101214
  2. BOTULINUM TOXIN TYPE A [Suspect]
     Indication: OFF LABEL USE
     Dosage: (SINGLE CYCLE),INTRAMUSCULAR
     Route: 030
     Dates: start: 20101214, end: 20101214

REACTIONS (1)
  - EYELID PTOSIS [None]
